FAERS Safety Report 14194196 (Version 1)
Quarter: 2017Q4

REPORT INFORMATION
  Report Type: Spontaneous
  Country: CA (occurrence: CA)
  Receive Date: 20171116
  Receipt Date: 20171116
  Transmission Date: 20180321
  Serious: Yes (Other)
  Sender: FDA-Public Use
  Company Number: PHHY2017CA149707

PATIENT
  Age: 17 Year
  Sex: Male

DRUGS (1)
  1. MINOCYCLINE [Suspect]
     Active Substance: MINOCYCLINE\MINOCYCLINE HYDROCHLORIDE
     Indication: ACNE
     Dosage: UNK
     Route: 065

REACTIONS (9)
  - Peripheral motor neuropathy [Recovered/Resolved]
  - Joint effusion [Recovered/Resolved]
  - Mononeuropathy multiplex [Recovered/Resolved]
  - Muscular weakness [Recovered/Resolved]
  - Polyarthritis [Recovered/Resolved]
  - Arthralgia [Recovered/Resolved]
  - Peripheral sensory neuropathy [Recovered/Resolved]
  - Sensory loss [Recovered/Resolved]
  - Dysaesthesia [Recovered/Resolved]
